FAERS Safety Report 8296669-4 (Version None)
Quarter: 2012Q2

REPORT INFORMATION
  Report Type: 
  Country: None (occurrence: None)
  Receive Date: 20120418
  Receipt Date: 20120418
  Transmission Date: 20120825
  Serious: Yes (Other)
  Sender: FDA-Public Use
  Company Number: None

PATIENT
  Age: 25 Year
  Sex: Female
  Weight: 120.2 kg

DRUGS (1)
  1. MIRENA [Suspect]
     Dates: start: 20120413, end: 20120417

REACTIONS (1)
  - DIZZINESS [None]
